FAERS Safety Report 8663160 (Version 7)
Quarter: 2012Q4

REPORT INFORMATION
  Report Type: 
  Country: GB (occurrence: GB)
  Receive Date: 20120713
  Receipt Date: 20120918
  Transmission Date: 20130627
  Serious: Yes (Life-Threatening, Hospitalization, Other)
  Sender: FDA-Public Use
  Company Number: GB-ACCORD-014019

PATIENT
  Age: 49 Year
  Sex: Female

DRUGS (6)
  1. TOPIRAMATE [Suspect]
     Indication: PSYCHOSIS
     Dosage: 300 mg, qd
     Route: 048
     Dates: start: 2007, end: 20120121
  2. CLOZARIL [Suspect]
     Indication: SCHIZOPHRENIA
     Dosage: 75 mg, UNK
     Route: 048
     Dates: start: 20120112, end: 20120117
  3. ZISPIN [Suspect]
     Indication: DEPRESSIVE SYMPTOM
     Dosage: 45 mg, qd
     Route: 048
     Dates: start: 2006, end: 20120121
  4. AMOXICILLIN [Concomitant]
     Indication: TOOTH ACHE
     Dosage: UNK
     Route: 048
     Dates: start: 20120116, end: 20120126
  5. ZOPICLONE [Concomitant]
     Indication: SLEEP PROBLEM
     Dosage: Ongoing use for years, still taking.
2.5 mg, UNK
     Route: 048
  6. QUETIAPINE FUMARATE [Concomitant]
     Indication: TOOTH INFECTION
     Dosage: Dosage form: unspecified
     Dates: start: 2007

REACTIONS (11)
  - Eosinophil count decreased [Recovered/Resolved]
  - Neutropenia [Recovered/Resolved]
  - Injury [Unknown]
  - Road traffic accident [Recovered/Resolved]
  - Scratch [Unknown]
  - Platelet count decreased [Recovered/Resolved]
  - Tooth infection [Recovered/Resolved]
  - Toothache [Recovered/Resolved]
  - White blood cell count decreased [Recovered/Resolved]
  - Off label use [Unknown]
  - Infection susceptibility increased [Unknown]
